FAERS Safety Report 4268612-6 (Version None)
Quarter: 2004Q1

REPORT INFORMATION
  Report Type: 
  Country: None (occurrence: None)
  Receive Date: 20040109
  Receipt Date: 20040109
  Transmission Date: 20041129
  Serious: No
  Sender: FDA-Public Use
  Company Number: None

PATIENT
  Age: 55 Year
  Sex: Female

DRUGS (2)
  1. VAGIFEM [Suspect]
     Dosage: 1 PV QD X 2 WK THEN 1 TWICE A WEEK
     Dates: start: 20031201, end: 20031207
  2. VAGIFEM [Suspect]
     Dosage: 1 PV QD X 2 WK THEN 1 TWICE A WEEK
     Dates: start: 20031210, end: 20031213

REACTIONS (1)
  - PHARMACEUTICAL PRODUCT COMPLAINT [None]
